FAERS Safety Report 9646357 (Version 1)
Quarter: 2013Q4

REPORT INFORMATION
  Report Type: Spontaneous
  Country: FR (occurrence: None)
  Receive Date: 20131024
  Receipt Date: 20131024
  Transmission Date: 20140711
  Serious: Yes (Other)
  Sender: FDA-Public Use
  Company Number: ACO_36550_2013

PATIENT
  Age: 63 Year
  Sex: Male
  Weight: 68 kg

DRUGS (8)
  1. FAMPYRA (DALFAMPRIDINE) TABLET, 10MG [Suspect]
     Indication: GAIT DISTURBANCE
     Route: 048
     Dates: start: 20130501, end: 20130510
  2. FLUOXETINE (FLUOXETINE HYDROCHLORIDE) [Concomitant]
  3. ALFUZOSINE HCL (ALFUZOSIN HYDROCHLORIDE) [Concomitant]
  4. FORLAX (MACROPOL) [Concomitant]
  5. ACTONEL (RISEDRONATE SODIUM) [Concomitant]
  6. LAMALINE (CAFFEINE, PAPAVER SOMNIFERUM LATEX, PARACETAMOL) [Concomitant]
  7. UVEDOSER (COLECALCIFEROL) [Concomitant]
  8. VITAMINE C (ASCORBIC ACID) [Concomitant]

REACTIONS (3)
  - Paraplegia [None]
  - Dysstasia [None]
  - Abasia [None]
